FAERS Safety Report 9290079 (Version 1)
Quarter: 2013Q2

REPORT INFORMATION
  Report Type: Spontaneous
  Country: US (occurrence: US)
  Receive Date: 20130515
  Receipt Date: 20130515
  Transmission Date: 20140414
  Serious: Yes (Other)
  Sender: FDA-Public Use
  Company Number: US-MERCK-0708USA01387

PATIENT
  Sex: Female

DRUGS (8)
  1. FOSAMAX [Suspect]
     Indication: OSTEOPOROSIS
     Dosage: 70 MG, UNK
     Route: 048
     Dates: start: 20030730, end: 20061005
  2. THERAPY UNSPECIFIED [Concomitant]
     Indication: HYPERTENSION
     Dates: start: 1994
  3. ESTRADIOL [Concomitant]
     Dosage: 0.1 MG, UNK
     Dates: start: 199312
  4. MK-0130 [Concomitant]
     Indication: MUSCLE SPASMS
     Dosage: 10 MG, UNK
     Dates: start: 200208
  5. HYDROCODONE BITARTRATE [Concomitant]
     Dosage: 5/500
     Dates: start: 200302
  6. ARAVA [Concomitant]
     Indication: RHEUMATOID ARTHRITIS
     Dosage: UNK
     Dates: start: 2000
  7. ENBREL [Concomitant]
     Indication: RHEUMATOID ARTHRITIS
     Dosage: UNK
     Dates: start: 2000
  8. IMURAN (AZATHIOPRINE SODIUM) [Concomitant]
     Indication: PROPHYLAXIS AGAINST TRANSPLANT REJECTION
     Dosage: UNK
     Dates: start: 2000

REACTIONS (12)
  - Osteonecrosis of jaw [Unknown]
  - Osteomyelitis [Unknown]
  - Dental caries [Unknown]
  - Breast mass [Unknown]
  - Melanocytic naevus [Unknown]
  - Pyrexia [Unknown]
  - Periodontitis [Unknown]
  - Bone loss [Unknown]
  - Loose tooth [Unknown]
  - Gingivitis [Unknown]
  - Gingival recession [Unknown]
  - Cataract [Unknown]
